FAERS Safety Report 5141506-X (Version None)
Quarter: 2006Q4

REPORT INFORMATION
  Report Type: 
  Country: None (occurrence: None)
  Receive Date: 20061030
  Receipt Date: 20061030
  Transmission Date: 20070319
  Serious: Yes (Other)
  Sender: FDA-Public Use
  Company Number: None

PATIENT
  Age: 32 Year
  Sex: Female
  Weight: 68.0396 kg

DRUGS (1)
  1. LEVAQUIN [Suspect]
     Indication: LOWER RESPIRATORY TRACT INFECTION
     Dosage: 500 MG ONCE DAILY PO
     Route: 048
     Dates: start: 20061021, end: 20061028

REACTIONS (7)
  - ABNORMAL BEHAVIOUR [None]
  - ABNORMAL DREAMS [None]
  - INSOMNIA [None]
  - JUDGEMENT IMPAIRED [None]
  - PALPITATIONS [None]
  - PANIC DISORDER [None]
  - PARANOIA [None]
